FAERS Safety Report 20901819 (Version 1)
Quarter: 2022Q2

REPORT INFORMATION
  Report Type: Spontaneous
  Country: ES (occurrence: ES)
  Receive Date: 20220601
  Receipt Date: 20220601
  Transmission Date: 20220721
  Serious: Yes (Hospitalization)
  Sender: FDA-Public Use
  Company Number: None

PATIENT
  Age: 32 Year
  Sex: Male

DRUGS (5)
  1. AMOXICILLIN\CLAVULANIC ACID [Suspect]
     Active Substance: AMOXICILLIN\CLAVULANIC ACID
     Indication: Hip fracture
     Dosage: UNIT DOSE:1 DF, FREQUENCY : 8 HOURS, DURATION : 7 DAYS
     Route: 048
     Dates: start: 20220324, end: 20220331
  2. OLANZAPINE [Concomitant]
     Active Substance: OLANZAPINE
     Dosage: UNIT DOSE 2.5 MG, FREQUENCY TIME 1 DAYS, (2770A)
     Route: 048
  3. RISPERIDONE [Concomitant]
     Active Substance: RISPERIDONE
     Dosage: 3MG(12H AND 6MG/24H,UNIT DOSE 12 MG, FREQUENCY TIME 1 DAYS,  (7201A)
     Route: 048
  4. IMRALDI [Concomitant]
     Active Substance: ADALIMUMAB
     Indication: Crohn^s disease
     Dosage: IMRALDI 40 MG SOLUTION FOR INJECTION IN PRE-FILLED SYRINGE, 1 PRE-FILLED SYRINGE OF 0.8 ML,UNIT DOSE
     Route: 058
  5. AZATHIOPRINE SODIUM [Concomitant]
     Active Substance: AZATHIOPRINE SODIUM
     Indication: Crohn^s disease
     Dosage: IMUREL 50 MG FILM-COATED TABLETS, 50 TABLETS,UNIT DOSE 50 MG, FREQUENCY TIME 1 DAYS
     Route: 048

REACTIONS (1)
  - Hypertransaminasaemia [Recovered/Resolved]

NARRATIVE: CASE EVENT DATE: 20220329
